FAERS Safety Report 6437823-3 (Version None)
Quarter: 2009Q4

REPORT INFORMATION
  Report Type: 
  Country: None (occurrence: None)
  Receive Date: 20091112
  Receipt Date: 20091102
  Transmission Date: 20100525
  Serious: Yes (Death, Other)
  Sender: FDA-Public Use
  Company Number: US-TYCO HEALTHCARE/MALLINCKRODT-T200901872

PATIENT
  Sex: Female

DRUGS (6)
  1. OPTIMARK [Suspect]
     Indication: IMAGING PROCEDURE
     Dosage: UNK
     Route: 042
  2. OMNISCAN [Suspect]
     Indication: IMAGING PROCEDURE
     Dosage: UNK
     Route: 042
     Dates: start: 20040601, end: 20040601
  3. OMNISCAN [Suspect]
     Dosage: UNK
     Route: 042
     Dates: start: 20040706, end: 20040706
  4. OMNISCAN [Suspect]
     Dosage: UNK
     Route: 042
     Dates: start: 20041223, end: 20041223
  5. OMNISCAN [Suspect]
     Dosage: UNK
     Route: 042
     Dates: start: 20050108, end: 20050108
  6. OMNISCAN [Suspect]
     Dosage: UNK
     Route: 042
     Dates: start: 20050227, end: 20050227

REACTIONS (1)
  - NEPHROGENIC SYSTEMIC FIBROSIS [None]
